FAERS Safety Report 8402862-X (Version None)
Quarter: 2012Q2

REPORT INFORMATION
  Report Type: 
  Country: None (occurrence: None)
  Receive Date: 20120601
  Receipt Date: 20120525
  Transmission Date: 20120825
  Serious: Yes (Hospitalization, Other)
  Sender: FDA-Public Use
  Company Number: FR-VERTEX PHARMACEUTICALS INC.-AE-2011-002197

PATIENT
  Sex: Female
  Weight: 68 kg

DRUGS (10)
  1. PEGASYS [Concomitant]
     Dates: end: 20120406
  2. PEGASYS [Concomitant]
     Route: 058
     Dates: start: 20110701
  3. COPEGUS [Concomitant]
     Route: 048
     Dates: start: 20110701
  4. OXAZEPAM [Concomitant]
     Indication: ANXIETY
  5. PEGASYS [Concomitant]
     Indication: HEPATITIS C
     Route: 058
     Dates: end: 20110701
  6. PROPRANOLOL [Concomitant]
     Indication: PORTAL HYPERTENSION
  7. VX-950 [Suspect]
     Indication: HEPATITIS C
     Route: 048
     Dates: start: 20110511, end: 20110802
  8. COPEGUS [Concomitant]
     Indication: HEPATITIS C
     Route: 048
     Dates: start: 20110511
  9. COPEGUS [Concomitant]
     Route: 048
     Dates: start: 20110901, end: 20120406
  10. ZYPREXA [Concomitant]
     Indication: ANXIETY

REACTIONS (6)
  - PANCYTOPENIA [None]
  - AGGRESSION [None]
  - ABDOMINAL PAIN [None]
  - CONSTIPATION [None]
  - ANAEMIA [None]
  - NAUSEA [None]
